FAERS Safety Report 8726968 (Version 2)
Quarter: 2013Q3

REPORT INFORMATION
  Report Type: Report from Study
  Country: US (occurrence: US)
  Receive Date: 20120816
  Receipt Date: 20130715
  Transmission Date: 20140515
  Serious: Yes (Other)
  Sender: FDA-Public Use
  Company Number: US-ELI_LILLY_AND_COMPANY-US201208002183

PATIENT
  Sex: Female

DRUGS (3)
  1. TERIPARATIDE [Suspect]
     Indication: OSTEOPOROSIS
     Dosage: 20 UG, QD
     Dates: start: 2009, end: 2009
  2. TERIPARATIDE [Suspect]
     Dosage: 20 UG, QD
     Dates: start: 20120313
  3. PREDNISONE [Concomitant]

REACTIONS (4)
  - Osteonecrosis [Unknown]
  - Injection site bruising [Unknown]
  - Injection site haemorrhage [Unknown]
  - Injection site pain [Unknown]
